FAERS Safety Report 24604523 (Version 2)
Quarter: 2025Q2

REPORT INFORMATION
  Report Type: Report from Study
  Country: US (occurrence: US)
  Receive Date: 20241111
  Receipt Date: 20250417
  Transmission Date: 20250716
  Serious: No
  Sender: AGIOS PHARMACEUTICALS
  Company Number: US-AGIOS-2411US03945

PATIENT
  Sex: Female

DRUGS (1)
  1. MITAPIVAT [Suspect]
     Active Substance: MITAPIVAT
     Indication: Pyruvate kinase deficiency anaemia
     Route: 048
     Dates: start: 20240625

REACTIONS (5)
  - Road traffic accident [Unknown]
  - Fatigue [Unknown]
  - Depression [Unknown]
  - Drug ineffective [Unknown]
  - Dyspnoea [Unknown]
